FAERS Safety Report 10217349 (Version 2)
Quarter: 2014Q2

REPORT INFORMATION
  Report Type: Spontaneous
  Country: US (occurrence: US)
  Receive Date: 20140604
  Receipt Date: 20140606
  Transmission Date: 20141212
  Serious: No
  Sender: FDA-Public Use
  Company Number: US-PFIZER INC-2014150189

PATIENT
  Sex: Female

DRUGS (4)
  1. LYRICA [Suspect]
     Dosage: UNK
  2. REQUIP [Interacting]
     Indication: SMOKING CESSATION THERAPY
     Dosage: UNK
     Dates: start: 20140417, end: 2014
  3. REQUIP [Interacting]
     Dosage: UNK
     Dates: start: 20140513
  4. DOXYCYCLINE [Concomitant]
     Dosage: UNK

REACTIONS (9)
  - Drug interaction [Unknown]
  - Joint swelling [Unknown]
  - Synovial cyst [Unknown]
  - Fatigue [Unknown]
  - Dysstasia [Unknown]
  - Headache [Unknown]
  - Chest pain [Unknown]
  - Pain in extremity [Unknown]
  - Back pain [Unknown]
